FAERS Safety Report 24916235 (Version 1)
Quarter: 2025Q1

REPORT INFORMATION
  Report Type: Spontaneous
  Country: US (occurrence: None)
  Receive Date: 20250131
  Receipt Date: 20250131
  Transmission Date: 20250409
  Serious: Yes (Hospitalization)
  Sender: FDA-CTU
  Company Number: None

PATIENT
  Age: 77 Year
  Sex: Male
  Weight: 94 kg

DRUGS (1)
  1. APIXABAN [Suspect]
     Active Substance: APIXABAN
     Indication: Deep vein thrombosis
     Dosage: FREQUENCY : TWICE A DAY;?
     Route: 048
     Dates: start: 20240611, end: 20241203

REACTIONS (4)
  - Gastrointestinal haemorrhage [None]
  - Barrett^s oesophagus [None]
  - Gastric antral vascular ectasia [None]
  - Gastritis [None]

NARRATIVE: CASE EVENT DATE: 20241118
